FAERS Safety Report 7943760-5 (Version None)
Quarter: 2011Q4

REPORT INFORMATION
  Report Type: 
  Country: None (occurrence: None)
  Receive Date: 20111128
  Receipt Date: 20111125
  Transmission Date: 20120403
  Serious: No
  Sender: FDA-Public Use
  Company Number: US-B.I. PHARMACEUTICALS,INC./RIDGEFIELD-2011-BP-26826BP

PATIENT
  Sex: Male

DRUGS (7)
  1. FISH OIL [Concomitant]
     Indication: ROUTINE HEALTH MAINTENANCE
  2. MULTI-VITAMIN [Concomitant]
     Indication: ROUTINE HEALTH MAINTENANCE
  3. CIPROFLOXACIN [Suspect]
     Dates: start: 20111122
  4. MEDICATION NOT FURTHER SPECIFIED [Concomitant]
     Indication: HYPERTENSION
  5. MEDICATION NOT FURTHER SPECIFIED [Concomitant]
     Indication: BLOOD CHOLESTEROL INCREASED
  6. SPIRIVA [Suspect]
     Indication: CHRONIC OBSTRUCTIVE PULMONARY DISEASE
     Dosage: 18 MCG
     Route: 055
     Dates: start: 20111122
  7. VITAMIN B COMPLEX CAP [Concomitant]
     Indication: ROUTINE HEALTH MAINTENANCE

REACTIONS (3)
  - RASH MACULO-PAPULAR [None]
  - RASH [None]
  - BLISTER [None]
